FAERS Safety Report 6644606-8 (Version None)
Quarter: 2010Q1

REPORT INFORMATION
  Report Type: 
  Country: None (occurrence: None)
  Receive Date: 20100318
  Receipt Date: 20100318
  Transmission Date: 20100710
  Serious: Yes (Death, Life-Threatening, Hospitalization)
  Sender: FDA-Public Use
  Company Number: None

PATIENT
  Age: 13 Year
  Sex: Male
  Weight: 55.6 kg

DRUGS (13)
  1. BORTEZOMIB [Suspect]
     Indication: ACUTE LYMPHOCYTIC LEUKAEMIA
     Dosage: 1.3MG/M2/DAY DAY 1, 4, 8, 11 IV
     Route: 042
     Dates: start: 20100126
  2. BORTEZOMIB [Suspect]
     Indication: ACUTE LYMPHOCYTIC LEUKAEMIA
     Dosage: 1.3MG/M2/DAY DAY 1, 4, 8, 11 IV
     Route: 042
     Dates: start: 20100129
  3. BORTEZOMIB [Suspect]
     Indication: ACUTE LYMPHOCYTIC LEUKAEMIA
     Dosage: 1.3MG/M2/DAY DAY 1, 4, 8, 11 IV
     Route: 042
     Dates: start: 20100202
  4. BORTEZOMIB [Suspect]
     Indication: ACUTE LYMPHOCYTIC LEUKAEMIA
     Dosage: 1.3MG/M2/DAY DAY 1, 4, 8, 11 IV
     Route: 042
     Dates: start: 20100205
  5. ACYCLOVIR [Concomitant]
  6. BACTRIM [Concomitant]
  7. CETERIZINE [Concomitant]
  8. CIPROFLOXACIN HCL [Concomitant]
  9. COD LIVER OIL [Concomitant]
  10. RANITIDINE [Concomitant]
  11. TYLENOL W/ CODEINE [Concomitant]
  12. VORICONAZOLE [Concomitant]
  13. ZOFRAN [Concomitant]

REACTIONS (14)
  - ASCITES [None]
  - BILIRUBIN CONJUGATED INCREASED [None]
  - BLOOD BILIRUBIN INCREASED [None]
  - CEREBRAL ISCHAEMIA [None]
  - CORTICAL LAMINAR NECROSIS [None]
  - ESCHERICHIA BACTERAEMIA [None]
  - HEPATOSPLENOMEGALY [None]
  - HYPOTENSION [None]
  - MENINGITIS BACTERIAL [None]
  - MYDRIASIS [None]
  - PORTAL VEIN THROMBOSIS [None]
  - RESPIRATORY DISTRESS [None]
  - TACHYPNOEA [None]
  - UNRESPONSIVE TO STIMULI [None]
